FAERS Safety Report 4884135-5 (Version None)
Quarter: 2006Q1

REPORT INFORMATION
  Report Type: 
  Country: None (occurrence: None)
  Receive Date: 20060118
  Receipt Date: 20051214
  Transmission Date: 20060701
  Serious: Yes (Other)
  Sender: FDA-Public Use
  Company Number: US-MERCK-0512USA02242

PATIENT
  Age: 80 Year
  Sex: Male
  Weight: 102 kg

DRUGS (6)
  1. VIOXX [Suspect]
     Indication: ARTHRITIS
     Route: 048
     Dates: start: 20030101, end: 20040101
  2. FUROSEMIDE [Concomitant]
     Route: 065
  3. CASODEX [Concomitant]
     Route: 065
  4. ROXICET [Concomitant]
     Route: 065
  5. ACTOS [Concomitant]
     Route: 065
  6. ZIAC [Concomitant]
     Route: 065

REACTIONS (4)
  - ANXIETY [None]
  - CEREBROVASCULAR ACCIDENT [None]
  - HIP SURGERY [None]
  - PROSTATE CANCER [None]
